FAERS Safety Report 9973619 (Version 2)
Quarter: 2014Q1

REPORT INFORMATION
  Report Type: Spontaneous
  Country: US (occurrence: US)
  Receive Date: 20140306
  Receipt Date: 20140318
  Transmission Date: 20141002
  Serious: No
  Sender: FDA-Public Use
  Company Number: US-BAYER-2014-026635

PATIENT
  Age: 70 Year
  Sex: Female
  Weight: 72 kg

DRUGS (1)
  1. ALEVE CAPLET [Suspect]
     Indication: MUSCLE STRAIN
     Dosage: 1 DF, BID
     Route: 048
     Dates: end: 20140216

REACTIONS (15)
  - Nausea [Not Recovered/Not Resolved]
  - Abdominal pain upper [Not Recovered/Not Resolved]
  - Headache [Not Recovered/Not Resolved]
  - Headache [None]
  - Rhinorrhoea [None]
  - Intentional drug misuse [None]
  - Chest pain [None]
  - White blood cell count decreased [None]
  - Dyspepsia [None]
  - Headache [None]
  - Asthenia [None]
  - Bowel movement irregularity [None]
  - Nausea [None]
  - Dyspepsia [None]
  - Chest pain [None]
